FAERS Safety Report 20748812 (Version 1)
Quarter: 2022Q2

REPORT INFORMATION
  Report Type: Report from Study
  Country: US (occurrence: US)
  Receive Date: 20220426
  Receipt Date: 20220426
  Transmission Date: 20220721
  Serious: Yes (Hospitalization, Other)
  Sender: FDA-Public Use
  Company Number: US-BRISTOL-MYERS SQUIBB COMPANY-2022-017323

PATIENT
  Age: 87 Year
  Sex: Female
  Weight: 64 kg

DRUGS (14)
  1. AZACITIDINE [Suspect]
     Active Substance: AZACITIDINE
     Indication: Myelodysplastic syndrome
     Dosage: DAY 1-7 DAYS WITHIN THE FIRST 9 CALENDAR DAYS OF A 28-DAY CYCLE (75 MG/M2
     Route: 058
     Dates: start: 20220207, end: 20220315
  2. VITAMIN C [Concomitant]
     Active Substance: ASCORBIC ACID
     Indication: Prophylaxis
     Dosage: 1 IN 1 D
     Route: 048
     Dates: start: 2021
  3. EPOETIN ALFA EPBX [Concomitant]
     Indication: Anaemia
     Route: 058
  4. VITAMIN D3 [Concomitant]
     Active Substance: CHOLECALCIFEROL
     Indication: Prophylaxis
     Dosage: 1 IN 1 D
     Route: 048
     Dates: start: 2017
  5. ESOMEPRAZOLE [Concomitant]
     Active Substance: ESOMEPRAZOLE
     Indication: Gastrooesophageal reflux disease
     Dosage: 1 IN 1 D
     Route: 048
     Dates: start: 2016
  6. ESOMEPRAZOLE [Concomitant]
     Active Substance: ESOMEPRAZOLE
     Dosage: 1 IN 1 D
     Route: 048
  7. AMLODIPINE [Concomitant]
     Active Substance: AMLODIPINE BESYLATE
     Indication: Hypertension
     Dosage: 1 IN 1 D
     Route: 048
     Dates: start: 2017
  8. PRAVASTATIN [Concomitant]
     Active Substance: PRAVASTATIN
     Indication: Hyperlipidaemia
     Dosage: 1 IN 1 D
     Route: 048
     Dates: start: 2017
  9. LOSARTAN [Concomitant]
     Active Substance: LOSARTAN
     Indication: Hypertension
     Dosage: 2 IN 1 D
     Route: 048
     Dates: start: 2001
  10. IRON [Concomitant]
     Active Substance: IRON
     Indication: Anaemia
     Dosage: 1 IN 1 D
     Route: 048
     Dates: start: 2015
  11. ONDANSETRON [Concomitant]
     Active Substance: ONDANSETRON
     Indication: Nausea
     Dosage: AS REQUIRED
     Route: 050
     Dates: start: 20220210
  12. ONDANSETRON [Concomitant]
     Active Substance: ONDANSETRON
     Indication: Vomiting
  13. ACYCLOVIR [Concomitant]
     Active Substance: ACYCLOVIR
     Indication: Infection prophylaxis
     Dosage: 2 IN 1 D
     Route: 048
     Dates: start: 20220207
  14. ALLOPURINOL [Concomitant]
     Active Substance: ALLOPURINOL
     Indication: Blood uric acid
     Route: 048
     Dates: start: 20220107

REACTIONS (2)
  - Sepsis [Recovered/Resolved]
  - Cholangitis [Recovered/Resolved]

NARRATIVE: CASE EVENT DATE: 20220324
